FAERS Safety Report 13517363 (Version 1)
Quarter: 2017Q2

REPORT INFORMATION
  Report Type: Report from Study
  Country: US (occurrence: None)
  Receive Date: 20170503
  Receipt Date: 20170503
  Transmission Date: 20170830
  Serious: Yes (Hospitalization)
  Sender: FDA-Public Use
  Company Number: 2017UCU075000105

PATIENT
  Age: 51 Year
  Sex: Female
  Weight: 109.32 kg

DRUGS (21)
  1. AMLODIPINE [Concomitant]
     Active Substance: AMLODIPINE BESYLATE
  2. DICYCLOMINE [Concomitant]
     Active Substance: DICYCLOMINE HYDROCHLORIDE
  3. GABAPENTIN. [Concomitant]
     Active Substance: GABAPENTIN
  4. TRAZODONE [Concomitant]
     Active Substance: TRAZODONE HYDROCHLORIDE
  5. ATROPINE. [Concomitant]
     Active Substance: ATROPINE
  6. PRAVASTATIN. [Concomitant]
     Active Substance: PRAVASTATIN
  7. INFLIXIMAB [Concomitant]
     Active Substance: INFLIXIMAB
  8. DOXYCYCLINE. [Suspect]
     Active Substance: DOXYCYCLINE
     Indication: SINUSITIS
  9. ADALIMUMAB [Concomitant]
     Active Substance: ADALIMUMAB
  10. ACETAMINOPHEN W/ HYDROCODONE [Concomitant]
     Active Substance: ACETAMINOPHEN\HYDROCODONE
  11. DAILY MULTIVITAMIN [Concomitant]
     Active Substance: VITAMINS
  12. ASPIRIN /00002701/ [Concomitant]
     Active Substance: ASPIRIN
  13. DIAZEPAM. [Concomitant]
     Active Substance: DIAZEPAM
  14. PREDNISONE. [Concomitant]
     Active Substance: PREDNISONE
  15. METHOTREXATE. [Concomitant]
     Active Substance: METHOTREXATE
  16. ONDANSETRON [Concomitant]
     Active Substance: ONDANSETRON
  17. LISINOPRIL. [Concomitant]
     Active Substance: LISINOPRIL
  18. MESALAMINE. [Concomitant]
     Active Substance: MESALAMINE
  19. CIMZIA [Suspect]
     Active Substance: CERTOLIZUMAB PEGOL
     Indication: CROHN^S DISEASE
     Dates: start: 20120425, end: 201602
  20. FLUTICASONE. [Concomitant]
     Active Substance: FLUTICASONE
  21. AZATHIOPRINE. [Concomitant]
     Active Substance: AZATHIOPRINE

REACTIONS (2)
  - Hypertensive crisis [None]
  - Chest pain [None]

NARRATIVE: CASE EVENT DATE: 20170406
